FAERS Safety Report 6197127-3 (Version None)
Quarter: 2009Q2

REPORT INFORMATION
  Report Type: 
  Country: None (occurrence: None)
  Receive Date: 20090518
  Receipt Date: 20090518
  Transmission Date: 20091009
  Serious: Yes (Life-Threatening, Hospitalization)
  Sender: FDA-Public Use
  Company Number: None

PATIENT
  Age: 8 Year
  Sex: Female
  Weight: 23.587 kg

DRUGS (1)
  1. SEROQUEL [Suspect]
     Indication: BIPOLAR I DISORDER
     Dosage: 25 MG BID PO
     Route: 048
     Dates: start: 20090220, end: 20090225

REACTIONS (11)
  - AGGRESSION [None]
  - ANXIETY [None]
  - CONDITION AGGRAVATED [None]
  - CONVERSION DISORDER [None]
  - DYSKINESIA [None]
  - HEART RATE INCREASED [None]
  - HEART RATE IRREGULAR [None]
  - MANIA [None]
  - MENTAL DISORDER [None]
  - RASH PRURITIC [None]
  - TIC [None]
